FAERS Safety Report 19097484 (Version 5)
Quarter: 2021Q3

REPORT INFORMATION
  Report Type: Spontaneous
  Country: US (occurrence: US)
  Receive Date: 20210406
  Receipt Date: 20210702
  Transmission Date: 20211014
  Serious: Yes (Other)
  Sender: FDA-Public Use
  Company Number: NVSC2021US077937

PATIENT
  Age: 85 Year
  Sex: Female
  Weight: 60.1 kg

DRUGS (3)
  1. LUTATHERA [Suspect]
     Active Substance: LUTETIUM OXODOTREOTIDE LU-177
     Dosage: 201.41 MCI
     Route: 065
     Dates: start: 20201124, end: 20201124
  2. LUTATHERA [Suspect]
     Active Substance: LUTETIUM OXODOTREOTIDE LU-177
     Dosage: 200.88 MCI
     Route: 065
     Dates: start: 20200930, end: 20200930
  3. LUTATHERA [Suspect]
     Active Substance: LUTETIUM OXODOTREOTIDE LU-177
     Indication: CARCINOID TUMOUR OF THE DUODENUM
     Dosage: 202.47 MCI
     Route: 065
     Dates: start: 20200805, end: 20200805

REACTIONS (7)
  - Kidney infection [Unknown]
  - Glomerular filtration rate decreased [Unknown]
  - Blood potassium increased [Unknown]
  - Thrombocytopenia [Unknown]
  - Platelet count decreased [Unknown]
  - Blood creatinine increased [Unknown]
  - Blood urea increased [Unknown]

NARRATIVE: CASE EVENT DATE: 20210112
